FAERS Safety Report 4361024-6 (Version None)
Quarter: 2004Q2

REPORT INFORMATION
  Report Type: 
  Country: None (occurrence: None)
  Receive Date: 20040517
  Receipt Date: 20040505
  Transmission Date: 20050107
  Serious: Yes (Hospitalization)
  Sender: FDA-Public Use
  Company Number: 206302

PATIENT
  Age: 39 Year
  Sex: Female

DRUGS (4)
  1. HERCEPTIN (TRASTUZUMAB) PWDR + SOLVENT,INFUSION SOLN,440MG [Suspect]
     Indication: BREAST CANCER
     Dosage: SEE IMAGE
     Route: 042
     Dates: start: 20040415, end: 20040415
  2. . [Concomitant]
  3. TAXOTERE [Suspect]
     Indication: BREAST CANCER
     Dosage: 120 MG, Q3W, INTRAVENOUS
     Route: 042
     Dates: start: 20040415, end: 20040415
  4. CARBOPLATIN [Suspect]
     Indication: BREAST CANCER
     Dosage: Q3W, INTRAVENOUS
     Route: 042
     Dates: start: 20040415, end: 20040415

REACTIONS (1)
  - NEUTROPENIC SEPSIS [None]
